FAERS Safety Report 13307025 (Version 1)
Quarter: 2017Q1

REPORT INFORMATION
  Report Type: Spontaneous
  Country: CA (occurrence: CA)
  Receive Date: 20170308
  Receipt Date: 20170308
  Transmission Date: 20170428
  Serious: Yes (Death, Hospitalization)
  Sender: FDA-Public Use
  Company Number: CA-INGENUS PHARMACEUTICALS NJ, LLC-ING201702-000096

PATIENT
  Age: 39 Year
  Sex: Female
  Weight: 90 kg

DRUGS (11)
  1. LEVOTHYROXINE. [Concomitant]
     Active Substance: LEVOTHYROXINE
  2. PROBENECID AND COLCHICINE [Suspect]
     Active Substance: COLCHICINE\PROBENECID
  3. ZOPICLONE [Suspect]
     Active Substance: ZOPICLONE
  4. OLANZAPINE. [Concomitant]
     Active Substance: OLANZAPINE
  5. LORAZEPAM. [Concomitant]
     Active Substance: LORAZEPAM
  6. FUROSEMIDE. [Concomitant]
     Active Substance: FUROSEMIDE
  7. TOPIRAMATE. [Concomitant]
     Active Substance: TOPIRAMATE
  8. VALPROIC ACID. [Concomitant]
     Active Substance: VALPROIC ACID
  9. OMEPRAZOLE. [Concomitant]
     Active Substance: OMEPRAZOLE
  10. OXYCODONE [Concomitant]
     Active Substance: OXYCODONE
  11. INDOMETHACIN. [Suspect]
     Active Substance: INDOMETHACIN

REACTIONS (10)
  - Agitation [Unknown]
  - Multiple organ dysfunction syndrome [Fatal]
  - Febrile neutropenia [Unknown]
  - Acute kidney injury [Unknown]
  - Shock [Unknown]
  - Metabolic acidosis [Unknown]
  - Toxicity to various agents [Fatal]
  - Intentional overdose [Fatal]
  - Septic shock [Unknown]
  - Respiratory distress [Unknown]
